FAERS Safety Report 4859692-5 (Version None)
Quarter: 2005Q4

REPORT INFORMATION
  Report Type: 
  Country: None (occurrence: None)
  Receive Date: 20051215
  Receipt Date: 20051215
  Transmission Date: 20060501
  Serious: Yes (Hospitalization, Other)
  Sender: FDA-Public Use
  Company Number: None

PATIENT
  Sex: Male
  Weight: 94.3 kg

DRUGS (7)
  1. TEMOZOLOMIDE [Suspect]
     Indication: GLIOBLASTOMA MULTIFORME
     Dosage: SEE IMAGE
     Dates: start: 20051111, end: 20051115
  2. TEMOZOLOMIDE [Suspect]
     Indication: GLIOBLASTOMA MULTIFORME
     Dosage: SEE IMAGE
     Dates: start: 20050710
  3. IRINOTECAN [Suspect]
     Dosage: SEE IMAGE
     Dates: start: 20051111, end: 20051128
  4. IRINOTECAN [Suspect]
     Dosage: SEE IMAGE
     Dates: start: 20050710
  5. RADIATION THERAPY [Suspect]
     Dosage: SEE IMAGE
  6. DECADRON [Concomitant]
  7. DILANTIN [Concomitant]

REACTIONS (8)
  - ABASIA [None]
  - ASTHENIA [None]
  - CONVULSION [None]
  - FALL [None]
  - FATIGUE [None]
  - LETHARGY [None]
  - NAUSEA [None]
  - VOMITING [None]
